FAERS Safety Report 25329485 (Version 2)
Quarter: 2025Q2

REPORT INFORMATION
  Report Type: Report from Study
  Country: CA (occurrence: CA)
  Receive Date: 20250519
  Receipt Date: 20250523
  Transmission Date: 20250717
  Serious: No
  Sender: CELLTRION
  Company Number: CA-CELLTRION INC.-2024CA027914

PATIENT

DRUGS (4)
  1. USTEKINUMAB [Suspect]
     Active Substance: USTEKINUMAB
     Indication: Psoriasis
     Route: 058
     Dates: start: 20241127
  2. USTEKINUMAB [Suspect]
     Active Substance: USTEKINUMAB
     Route: 058
     Dates: start: 20250202
  3. USTEKINUMAB [Suspect]
     Active Substance: USTEKINUMAB
     Route: 058
     Dates: start: 20250323
  4. USTEKINUMAB [Suspect]
     Active Substance: USTEKINUMAB
     Route: 058

REACTIONS (13)
  - Respiratory tract congestion [Unknown]
  - Lymphadenopathy [Unknown]
  - Malaise [Unknown]
  - Swelling [Unknown]
  - Lip exfoliation [Recovered/Resolved]
  - Rhinorrhoea [Unknown]
  - Erythema [Unknown]
  - Diarrhoea [Unknown]
  - Arthralgia [Recovering/Resolving]
  - Illness [Unknown]
  - Treatment delayed [Unknown]
  - Off label use [Unknown]
  - Intentional dose omission [Unknown]

NARRATIVE: CASE EVENT DATE: 20241214
